FAERS Safety Report 14169291 (Version 18)
Quarter: 2019Q3

REPORT INFORMATION
  Report Type: Spontaneous
  Country: DE (occurrence: DE)
  Receive Date: 20171107
  Receipt Date: 20190923
  Transmission Date: 20191004
  Serious: Yes (Hospitalization, Other)
  Sender: FDA-Public Use
  Company Number: DE-BIOGEN-2017BI00481665

PATIENT
  Age: 33 Year
  Sex: Female
  Weight: 66 kg

DRUGS (19)
  1. PARACETAMOL [Concomitant]
     Active Substance: ACETAMINOPHEN
     Route: 065
  2. ESOMEPRAZOLE. [Concomitant]
     Active Substance: ESOMEPRAZOLE MAGNESIUM
     Indication: PRODUCT USED FOR UNKNOWN INDICATION
     Route: 050
  3. LORAZEPAM. [Concomitant]
     Active Substance: LORAZEPAM
     Route: 065
     Dates: start: 201802, end: 20180212
  4. MORPHINE SULFATE. [Concomitant]
     Active Substance: MORPHINE SULFATE
     Route: 065
  5. LORAZEPAM. [Concomitant]
     Active Substance: LORAZEPAM
     Indication: PRODUCT USED FOR UNKNOWN INDICATION
     Dosage: 0.5MG IN AM, 1MG IN NN, 0.5MG IN PM, 1MG AT HS
     Route: 050
  6. LORAZEPAM. [Concomitant]
     Active Substance: LORAZEPAM
     Dosage: 1 TAB IN MORNING, 2 TABS IN EVENING AND REDUCE BY 0.5MG TAB QW
     Route: 065
     Dates: start: 201801
  7. XYLOMETAZOLINE [Concomitant]
     Active Substance: XYLOMETAZOLINE
     Indication: PRODUCT USED FOR UNKNOWN INDICATION
     Route: 050
  8. MOVICOL [Concomitant]
     Active Substance: POLYETHYLENE GLYCOL 3350\POTASSIUM CHLORIDE\SODIUM BICARBONATE\SODIUM CHLORIDE
     Indication: PRODUCT USED FOR UNKNOWN INDICATION
     Route: 050
  9. ZINBRYTA [Suspect]
     Active Substance: DACLIZUMAB
     Route: 050
     Dates: start: 201707, end: 201709
  10. VITAMIN D [Concomitant]
     Active Substance: VITAMIN D NOS
     Indication: OSTEOPOROSIS PROPHYLAXIS
     Dosage: DAILY DOSE: 20000 IU INTERNATIONAL UNIT(S) EVERY WEEKS
     Route: 050
     Dates: start: 2012
  11. PARACETAMOL [Concomitant]
     Active Substance: ACETAMINOPHEN
     Route: 065
  12. ZINBRYTA [Suspect]
     Active Substance: DACLIZUMAB
     Indication: RELAPSING-REMITTING MULTIPLE SCLEROSIS
     Dosage: 2 TIMES, LAST DOSE ON 04 JUL 2017
     Route: 050
     Dates: start: 20170606, end: 20170704
  13. LORAZEPAM. [Concomitant]
     Active Substance: LORAZEPAM
     Route: 065
     Dates: start: 20180212
  14. FRAXIPARINE [Concomitant]
     Active Substance: NADROPARIN CALCIUM
     Indication: PRODUCT USED FOR UNKNOWN INDICATION
     Route: 050
  15. MORPHINE SULFATE. [Concomitant]
     Active Substance: MORPHINE SULFATE
     Indication: PRODUCT USED FOR UNKNOWN INDICATION
     Route: 050
  16. PARACETAMOL [Concomitant]
     Active Substance: ACETAMINOPHEN
     Indication: PRODUCT USED FOR UNKNOWN INDICATION
     Route: 050
  17. PARACETAMOL [Concomitant]
     Active Substance: ACETAMINOPHEN
     Route: 065
  18. BISACODYL. [Concomitant]
     Active Substance: BISACODYL
     Indication: PRODUCT USED FOR UNKNOWN INDICATION
     Dosage: AS NEEDED
     Route: 050
  19. LEVOMEPROMAZINE [Concomitant]
     Active Substance: LEVOMEPROMAZINE
     Indication: PRODUCT USED FOR UNKNOWN INDICATION
     Dosage: 12.5MG-6.25MG-12.5 MG
     Route: 050

REACTIONS (28)
  - Multiple sclerosis relapse [Recovered/Resolved]
  - Vertigo [Recovered/Resolved]
  - Hyponatraemia [Unknown]
  - Meningitis listeria [Recovered/Resolved]
  - Eosinophilia [Recovered/Resolved with Sequelae]
  - Coma [Recovered/Resolved]
  - Abscess [Recovered/Resolved]
  - Drug reaction with eosinophilia and systemic symptoms [Recovered/Resolved with Sequelae]
  - Leukocytosis [Recovered/Resolved with Sequelae]
  - Hypokalaemia [Unknown]
  - Meningitis viral [Recovered/Resolved]
  - Meningitis staphylococcal [Recovered/Resolved]
  - CSF white blood cell count increased [Unknown]
  - Cerebral haemorrhage [Recovered/Resolved]
  - Hydrocephalus [Unknown]
  - Brain oedema [Recovered/Resolved with Sequelae]
  - Alanine aminotransferase increased [Unknown]
  - Seroma [Recovered/Resolved]
  - Encephalitis autoimmune [Not Recovered/Not Resolved]
  - Pyrexia [Recovered/Resolved]
  - Pruritus [Not Recovered/Not Resolved]
  - Blister [Not Recovered/Not Resolved]
  - Ataxia [Not Recovered/Not Resolved]
  - Respiratory failure [Recovered/Resolved]
  - Panic attack [Unknown]
  - Gamma-glutamyltransferase increased [Unknown]
  - Impaired healing [Recovered/Resolved]
  - Staphylococcus test positive [Recovered/Resolved]

NARRATIVE: CASE EVENT DATE: 2017
